FAERS Safety Report 8255977-3 (Version None)
Quarter: 2012Q2

REPORT INFORMATION
  Report Type: 
  Country: None (occurrence: None)
  Receive Date: 20120403
  Receipt Date: 20120321
  Transmission Date: 20120825
  Serious: Yes (Other)
  Sender: FDA-Public Use
  Company Number: DE-ROCHE-1051307

PATIENT
  Sex: Female
  Weight: 73 kg

DRUGS (2)
  1. MIRCERA [Suspect]
     Route: 042
     Dates: start: 20120301
  2. MIRCERA [Suspect]
     Indication: NEPHROGENIC ANAEMIA
     Route: 042
     Dates: start: 20110423, end: 20120320

REACTIONS (1)
  - HAEMOGLOBIN DECREASED [None]
